FAERS Safety Report 7038316-5 (Version None)
Quarter: 2010Q4

REPORT INFORMATION
  Report Type: 
  Country: None (occurrence: None)
  Receive Date: 20101011
  Receipt Date: 20090914
  Transmission Date: 20110411
  Serious: No
  Sender: FDA-Public Use
  Company Number: US-PFIZER INC-2009271547

PATIENT
  Sex: Female

DRUGS (1)
  1. NEURONTIN [Suspect]
     Indication: PAIN IN EXTREMITY
     Dosage: 300 MG, 1X/DAY
     Route: 048
     Dates: start: 20090901

REACTIONS (1)
  - DRUG INEFFECTIVE [None]
